FAERS Safety Report 7960089-X (Version None)
Quarter: 2011Q4

REPORT INFORMATION
  Report Type: 
  Country: None (occurrence: None)
  Receive Date: 20111206
  Receipt Date: 20111129
  Transmission Date: 20120403
  Serious: Yes (Other)
  Sender: FDA-Public Use
  Company Number: PHHY2011MX105303

PATIENT
  Sex: Female

DRUGS (3)
  1. DIOVAN HCT [Suspect]
     Indication: HYPERTENSION
     Dosage: 1 DF (160/12.5 MG), PER DAY
     Dates: start: 20100511
  2. DIOVAN [Suspect]
     Indication: HYPERTENSION
     Dosage: 80 MG, PER DAY
     Dates: start: 20100511
  3. ADALAT [Concomitant]
     Indication: HYPERTENSION
     Dosage: 1 DF, UNK
     Dates: start: 20110501

REACTIONS (2)
  - DEAFNESS TRANSITORY [None]
  - HYPERTENSION [None]
